FAERS Safety Report 21074928 (Version 1)
Quarter: 2022Q3

REPORT INFORMATION
  Report Type: Spontaneous
  Country: US (occurrence: None)
  Receive Date: 20220712
  Receipt Date: 20220712
  Transmission Date: 20221026
  Serious: No
  Sender: FDA-Public Use
  Company Number: None

PATIENT
  Sex: Male

DRUGS (1)
  1. ENBREL [Suspect]
     Active Substance: ETANERCEPT
     Indication: Rheumatoid arthritis
     Dosage: FREQUENCY : UNKNOWN;?
     Route: 058
     Dates: start: 20220418

REACTIONS (4)
  - Pain [None]
  - Joint swelling [None]
  - Joint swelling [None]
  - Treatment delayed [None]
